FAERS Safety Report 8328590-7 (Version None)
Quarter: 2012Q2

REPORT INFORMATION
  Report Type: 
  Country: None (occurrence: None)
  Receive Date: 20120502
  Receipt Date: 20120423
  Transmission Date: 20120825
  Serious: Yes (Hospitalization)
  Sender: FDA-Public Use
  Company Number: US-VERTEX PHARMACEUTICALS INC.-AE-2012-004386

PATIENT
  Sex: Male

DRUGS (3)
  1. PEGASYS [Concomitant]
     Indication: HEPATITIS C
     Route: 058
     Dates: start: 20120123
  2. INCIVEK [Suspect]
     Indication: HEPATITIS C
     Route: 048
     Dates: start: 20120123
  3. RIBAVIRIN [Concomitant]
     Indication: HEPATITIS C
     Dates: start: 20120123

REACTIONS (10)
  - PLATELET COUNT DECREASED [None]
  - NAUSEA [None]
  - ANAEMIA [None]
  - NEUTROPENIA [None]
  - WEIGHT DECREASED [None]
  - VOMITING [None]
  - ESCHERICHIA BACTERAEMIA [None]
  - GASTROINTESTINAL INFLAMMATION [None]
  - DIARRHOEA [None]
  - PROCTALGIA [None]
